FAERS Safety Report 4305468-7 (Version None)
Quarter: 2004Q1

REPORT INFORMATION
  Report Type: 
  Country: None (occurrence: None)
  Receive Date: 20040223
  Receipt Date: 20031216
  Transmission Date: 20041129
  Serious: No
  Sender: FDA-Public Use
  Company Number: SU-2003-002003

PATIENT

DRUGS (2)
  1. BENICAR [Suspect]
     Indication: HYPERTENSION
     Dosage: 20 MG QD PO
     Route: 048
     Dates: start: 20030101
  2. TOPROL-XL [Suspect]
     Dosage: 100 MG DAILY PO
     Route: 048

REACTIONS (2)
  - DRUG INTERACTION [None]
  - REBOUND EFFECT [None]
